FAERS Safety Report 11881176 (Version 1)
Quarter: 2015Q4

REPORT INFORMATION
  Report Type: Spontaneous
  Country: NL (occurrence: NL)
  Receive Date: 20151231
  Receipt Date: 20151231
  Transmission Date: 20160305
  Serious: Yes (Hospitalization)
  Sender: FDA-Public Use
  Company Number: NL-009507513-1512NLD012245

PATIENT
  Age: 59 Year
  Sex: Male
  Weight: 85 kg

DRUGS (4)
  1. ENTACAPONE. [Interacting]
     Active Substance: ENTACAPONE
     Indication: PARKINSON^S DISEASE
     Dosage: 4 TIME A DAY 1 UNIT (S)
     Route: 048
     Dates: start: 20151127, end: 20151203
  2. SINEMET [Suspect]
     Active Substance: CARBIDOPA\LEVODOPA
     Indication: PARKINSON^S DISEASE
     Dosage: 3 TIMES A DAY 2 UNIT(S)
     Route: 048
     Dates: start: 20130101
  3. VENLAFAXINE HYDROCHLORIDE. [Interacting]
     Active Substance: VENLAFAXINE HYDROCHLORIDE
     Indication: DEPRESSION
     Dosage: 1 TIME A DAY 1 UNIT (S)
     Route: 048
     Dates: start: 20130101
  4. PRAMIPEXOLE DIHYDROCHLORIDE. [Concomitant]
     Active Substance: PRAMIPEXOLE DIHYDROCHLORIDE
     Dosage: 1 TIME A DAY 4.5 UNIT(S) (20.25 MG)
     Route: 048
     Dates: start: 20130101

REACTIONS (2)
  - Drug interaction [Recovered/Resolved]
  - Palpitations [Recovered/Resolved]

NARRATIVE: CASE EVENT DATE: 20151130
